FAERS Safety Report 7062066-2 (Version None)
Quarter: 2010Q4

REPORT INFORMATION
  Report Type: 
  Country: None (occurrence: None)
  Receive Date: 20101026
  Receipt Date: 20101015
  Transmission Date: 20110411
  Serious: Yes (Other)
  Sender: FDA-Public Use
  Company Number: B0677879A

PATIENT
  Sex: Female

DRUGS (3)
  1. RANITIDINE [Suspect]
  2. METOCLOPRAMIDE [Suspect]
  3. VALOID [Suspect]
     Dosage: 450MG PER DAY
     Route: 048
     Dates: start: 20100916, end: 20100919

REACTIONS (2)
  - ABORTION SPONTANEOUS [None]
  - HAEMORRHAGE [None]
